FAERS Safety Report 4530839-3 (Version None)
Quarter: 2004Q4

REPORT INFORMATION
  Report Type: 
  Country: None (occurrence: None)
  Receive Date: 20041215
  Receipt Date: 20030127
  Transmission Date: 20050328
  Serious: Yes (Other)
  Sender: FDA-Public Use
  Company Number: MEDI-0002492

PATIENT
  Age: 65 Year
  Sex: Male
  Weight: 111.5849 kg

DRUGS (13)
  1. ETHYOL [Suspect]
     Indication: RADIOTHERAPY
     Dosage: 500 MG, 5 IN 1 WK, SUBCUTANEOUS
     Route: 058
     Dates: start: 20021014, end: 20021021
  2. COUMADIN [Concomitant]
  3. FE SO4 (FERROUS SULFATE) [Concomitant]
  4. LOVENOX [Concomitant]
  5. KCL (POTASSIUM CHLORIDE) [Concomitant]
  6. PERI-COLACE (DOCUSATE SODIUM, CANSANTHRANOL) [Concomitant]
  7. TEQUIN [Concomitant]
  8. PERCOCET [Concomitant]
  9. CARAFATE [Concomitant]
  10. NYSTATIN [Concomitant]
  11. MAALOX (MAGNESIUM HYDROXIDE, ALUMINIUM HYDROXIDE GEL) [Concomitant]
  12. XYLOCAINE [Concomitant]
  13. RADIATION THERAPY [Concomitant]

REACTIONS (7)
  - ANAPHYLACTIC REACTION [None]
  - INJECTION SITE BURNING [None]
  - INJECTION SITE ERYTHEMA [None]
  - LOCAL REACTION [None]
  - RADIATION SKIN INJURY [None]
  - RASH MACULO-PAPULAR [None]
  - THROAT TIGHTNESS [None]
